FAERS Safety Report 8815996 (Version 1)
Quarter: 2012Q4

REPORT INFORMATION
  Report Type: 
  Country: US (occurrence: US)
  Receive Date: 20120928
  Receipt Date: 20120928
  Transmission Date: 20130627
  Serious: No
  Sender: FDA-Public Use
  Company Number: US-VIIV HEALTHCARE LIMITED-A0972695A

PATIENT
  Age: 58 Year
  Sex: Male

DRUGS (1)
  1. EPZICOM [Suspect]
     Indication: PRODUCT USED FOR UNKNOWN INDICATION
     Route: 048
     Dates: start: 20120312, end: 20120330

REACTIONS (1)
  - Hypersensitivity [Unknown]
